FAERS Safety Report 7593292-1 (Version None)
Quarter: 2011Q3

REPORT INFORMATION
  Report Type: 
  Country: None (occurrence: None)
  Receive Date: 20110706
  Receipt Date: 20110627
  Transmission Date: 20111222
  Serious: Yes (Hospitalization)
  Sender: FDA-Public Use
  Company Number: US-ASTRAZENECA-2011SE30961

PATIENT
  Age: 67 Year
  Sex: Female

DRUGS (11)
  1. NEXIUM [Suspect]
     Route: 048
  2. LIPITOR [Concomitant]
  3. FLUOXETINE HCL [Concomitant]
  4. SYNTHROID [Concomitant]
  5. RAMIPRIL [Concomitant]
  6. HYDROCODONE BITARTRATE AND ACETAMINOPHEN [Concomitant]
     Dosage: 10/500
  7. PREMARIN [Concomitant]
  8. FUROSEMIDE [Concomitant]
  9. SPIRIVA [Concomitant]
  10. ZOLPIDEM [Concomitant]
  11. BUSPIRONE RCT [Concomitant]

REACTIONS (1)
  - LIMB CRUSHING INJURY [None]
